FAERS Safety Report 14891716 (Version 1)
Quarter: 2018Q2

REPORT INFORMATION
  Report Type: Spontaneous
  Country: US (occurrence: US)
  Receive Date: 20180426
  Receipt Date: 20180426
  Transmission Date: 20180711
  Serious: Yes (Hospitalization)
  Sender: FDA-Public Use
  Company Number: None

PATIENT
  Age: 64 Year
  Sex: Female

DRUGS (5)
  1. LIDOCAINE. [Concomitant]
     Active Substance: LIDOCAINE
  2. CARVEDILOL 6.25MG [Suspect]
     Active Substance: CARVEDILOL
     Indication: BLOOD PRESSURE INCREASED
     Route: 048
     Dates: start: 20180406
  3. ACYCLOVIR. [Concomitant]
     Active Substance: ACYCLOVIR
  4. BENZOCAINE. [Concomitant]
     Active Substance: BENZOCAINE
  5. CEPHALEXIN. [Concomitant]
     Active Substance: CEPHALEXIN

REACTIONS (7)
  - Blood pressure decreased [None]
  - Acute kidney injury [None]
  - Sepsis [None]
  - Diarrhoea [None]
  - Asthenia [None]
  - Urinary tract infection [None]
  - Dehydration [None]

NARRATIVE: CASE EVENT DATE: 20180406
